FAERS Safety Report 9748320 (Version 1)
Quarter: 2013Q4

REPORT INFORMATION
  Report Type: Spontaneous
  Country: MC (occurrence: FR)
  Receive Date: 20131212
  Receipt Date: 20131212
  Transmission Date: 20140711
  Serious: Yes (Other)
  Sender: FDA-Public Use
  Company Number: MC-ASTRAZENECA-2013SE89388

PATIENT
  Age: 71 Year
  Sex: Female

DRUGS (8)
  1. XEROQUEL [Suspect]
     Indication: BIPOLAR I DISORDER
     Dosage: PROGRESSIVE INCREASE OF DOSE UP TO 150 MG PER DAY
     Route: 048
     Dates: start: 201311
  2. XEROQUEL [Suspect]
     Indication: BIPOLAR I DISORDER
     Route: 048
     Dates: end: 20131201
  3. XEROQUEL [Suspect]
     Indication: BIPOLAR I DISORDER
     Route: 048
     Dates: start: 20131202
  4. LAMICTAL [Concomitant]
     Route: 048
  5. KALEORID [Concomitant]
     Route: 048
  6. KARDEGIC [Concomitant]
     Route: 048
  7. LEVOTHYROX [Concomitant]
     Route: 048
  8. TEMESTA [Concomitant]
     Route: 048

REACTIONS (2)
  - Pancytopenia [Not Recovered/Not Resolved]
  - Drug ineffective [Not Recovered/Not Resolved]
